FAERS Safety Report 8141772-2 (Version None)
Quarter: 2012Q1

REPORT INFORMATION
  Report Type: 
  Country: None (occurrence: None)
  Receive Date: 20120216
  Receipt Date: 20120216
  Transmission Date: 20120608
  Serious: No
  Sender: FDA-Public Use
  Company Number: US-PFIZER INC-2011276271

PATIENT
  Sex: Female

DRUGS (2)
  1. WARFARIN [Concomitant]
     Indication: THROMBOSIS
     Dosage: UNK
  2. FLECTOR [Suspect]
     Indication: INTERVERTEBRAL DISC DEGENERATION
     Dosage: UNK, AS NEEDED
     Route: 061
     Dates: start: 20110701

REACTIONS (1)
  - PRODUCT SIZE ISSUE [None]
